FAERS Safety Report 23179302 (Version 2)
Quarter: 2024Q2

REPORT INFORMATION
  Report Type: Spontaneous
  Country: LT (occurrence: LT)
  Receive Date: 20231113
  Receipt Date: 20240618
  Transmission Date: 20240716
  Serious: Yes (Hospitalization, Other)
  Sender: FDA-Public Use
  Company Number: None

PATIENT
  Age: 36 Year
  Sex: Female
  Weight: 54 kg

DRUGS (6)
  1. CIPRALEX [Suspect]
     Active Substance: ESCITALOPRAM OXALATE
     Indication: Generalised anxiety disorder
     Dosage: UNIT DOSE 1 DOSAGE FORMS
     Route: 048
     Dates: start: 202202, end: 20230127
  2. CIPRALEX [Suspect]
     Active Substance: ESCITALOPRAM OXALATE
     Indication: Generalised anxiety disorder
     Route: 048
     Dates: start: 2023
  3. NORTRIPTYLINE HYDROCHLORIDE [Suspect]
     Active Substance: NORTRIPTYLINE HYDROCHLORIDE
     Indication: Generalised anxiety disorder
     Dosage: UNIT DOSE 12.5 MILLIGRAM
     Route: 048
     Dates: start: 20230128, end: 20230618
  4. NORTRIPTYLINE HYDROCHLORIDE [Suspect]
     Active Substance: NORTRIPTYLINE HYDROCHLORIDE
     Indication: Generalised anxiety disorder
     Route: 048
     Dates: start: 2023
  5. MIRTAZAPINE [Suspect]
     Active Substance: MIRTAZAPINE
     Indication: Generalised anxiety disorder
     Dosage: UNIT DOSE 1 DOSAGE FORMS
     Route: 048
     Dates: start: 20210924, end: 202201
  6. MIRTAZAPINE [Suspect]
     Active Substance: MIRTAZAPINE
     Indication: Generalised anxiety disorder
     Route: 048

REACTIONS (50)
  - Hallucination [Recovered/Resolved]
  - Loss of libido [Recovering/Resolving]
  - Anger [Recovering/Resolving]
  - Dysphagia [Recovering/Resolving]
  - Hypoaesthesia [Recovered/Resolved]
  - Suicidal ideation [Not Recovered/Not Resolved]
  - Derealisation [Recovering/Resolving]
  - Insomnia [Recovering/Resolving]
  - Genital anaesthesia [Recovering/Resolving]
  - Tremor [Not Recovered/Not Resolved]
  - Tunnel vision [Recovered/Resolved]
  - Dry eye [Not Recovered/Not Resolved]
  - Blood pressure increased [Recovering/Resolving]
  - Dizziness [Recovering/Resolving]
  - Ocular rosacea [Not Recovered/Not Resolved]
  - Palpitations [Recovering/Resolving]
  - Arthralgia [Recovering/Resolving]
  - Appetite disorder [Recovering/Resolving]
  - Anxiety [Recovering/Resolving]
  - Tinnitus [Not Recovered/Not Resolved]
  - Hypoaesthesia [Recovered/Resolved]
  - Akathisia [Recovering/Resolving]
  - Dry mouth [Recovering/Resolving]
  - Underdose [Unknown]
  - Antidepressant discontinuation syndrome [Recovering/Resolving]
  - Hyperacusis [Not Recovered/Not Resolved]
  - Wrong technique in product usage process [Unknown]
  - Memory impairment [Recovering/Resolving]
  - Dyspepsia [Recovering/Resolving]
  - Headache [Recovering/Resolving]
  - Agoraphobia [Recovering/Resolving]
  - Brain fog [Recovering/Resolving]
  - Asthenia [Recovering/Resolving]
  - Product use in unapproved indication [Unknown]
  - Dysstasia [Recovering/Resolving]
  - Dysphoria [Recovering/Resolving]
  - Autophobia [Recovering/Resolving]
  - Depersonalisation/derealisation disorder [Recovering/Resolving]
  - Bruxism [Not Recovered/Not Resolved]
  - Nausea [Recovering/Resolving]
  - Vertigo [Recovering/Resolving]
  - Anhedonia [Recovered/Resolved]
  - Panic attack [Recovering/Resolving]
  - Ageusia [Recovering/Resolving]
  - Paraesthesia [Recovering/Resolving]
  - Abdominal pain upper [Recovering/Resolving]
  - Facial pain [Recovering/Resolving]
  - Rhinorrhoea [Recovering/Resolving]
  - Myalgia [Recovering/Resolving]
  - Premenstrual syndrome [Recovering/Resolving]

NARRATIVE: CASE EVENT DATE: 20210924
